FAERS Safety Report 8242930-9 (Version None)
Quarter: 2012Q1

REPORT INFORMATION
  Report Type: 
  Country: None (occurrence: None)
  Receive Date: 20120329
  Receipt Date: 20120329
  Transmission Date: 20120608
  Serious: Yes (Hospitalization)
  Sender: FDA-Public Use
  Company Number: None

PATIENT
  Age: 12 Year
  Sex: Male
  Weight: 43.998 kg

DRUGS (1)
  1. LAMOTRGINE [Suspect]
     Indication: AFFECTIVE DISORDER
     Dosage: 25 MG
     Route: 048
     Dates: start: 20120229, end: 20120310

REACTIONS (8)
  - BRADYCARDIA [None]
  - PYREXIA [None]
  - LIP EXFOLIATION [None]
  - MUCOUS MEMBRANE DISORDER [None]
  - FATIGUE [None]
  - RASH [None]
  - ARTHRALGIA [None]
  - CHEST PAIN [None]
